FAERS Safety Report 13484181 (Version 1)
Quarter: 2017Q2

REPORT INFORMATION
  Report Type: Spontaneous
  Country: US (occurrence: US)
  Receive Date: 20170425
  Receipt Date: 20170425
  Transmission Date: 20170830
  Serious: Yes (Other)
  Sender: FDA-Public Use
  Company Number: US-STRIDES ARCOLAB LIMITED-2016SP005749

PATIENT

DRUGS (8)
  1. ETOPOSIDE. [Concomitant]
     Active Substance: ETOPOSIDE
     Indication: UTERINE CANCER
     Dosage: UNK
  2. ACTINOMYCIN D [Concomitant]
     Active Substance: DACTINOMYCIN
     Indication: UTERINE CANCER
     Dosage: UNK
  3. CYCLOPHOSPHAMIDE. [Concomitant]
     Active Substance: CYCLOPHOSPHAMIDE
     Indication: UTERINE CANCER
     Dosage: UNK
  4. VINCRISTINE [Concomitant]
     Active Substance: VINCRISTINE
     Indication: UTERINE CANCER
     Dosage: UNK
  5. PEGFILGRASTIM [Concomitant]
     Active Substance: PEGFILGRASTIM
     Indication: FEBRILE NEUTROPENIA
     Dosage: UNK
  6. VANCOMYCIN [Suspect]
     Active Substance: VANCOMYCIN
     Indication: PRODUCT USED FOR UNKNOWN INDICATION
     Dosage: UNK
  7. ANTICOAGULANT CIT PHOS DEX ADENINE [Concomitant]
     Active Substance: CITRIC ACID MONOHYDRATE\DEXTROSE\SODIUM CITRATE\SODIUM PHOSPHATE, MONOBASIC
     Indication: PULMONARY EMBOLISM
     Dosage: UNK
  8. METHOTREXATE. [Concomitant]
     Active Substance: METHOTREXATE
     Indication: UTERINE CANCER
     Dosage: UNK

REACTIONS (1)
  - Nephropathy toxic [Unknown]
